FAERS Safety Report 9969601 (Version 2)
Quarter: 2014Q1

REPORT INFORMATION
  Report Type: Spontaneous
  Country: US (occurrence: US)
  Receive Date: 20140306
  Receipt Date: 20140306
  Transmission Date: 20141002
  Serious: No
  Sender: FDA-Public Use
  Company Number: US-DRREDDYS-USA/USA/13/0029405

PATIENT
  Age: 86 Year
  Sex: Female

DRUGS (4)
  1. CLOPIDOGREL BISULFATE [Suspect]
     Indication: TRANSIENT ISCHAEMIC ATTACK
     Route: 065
     Dates: start: 2013
  2. PROCARDIA [Concomitant]
     Indication: PRODUCT USED FOR UNKNOWN INDICATION
     Route: 065
  3. TOPROL [Concomitant]
     Indication: PRODUCT USED FOR UNKNOWN INDICATION
     Route: 065
  4. LOZOL [Concomitant]
     Indication: PRODUCT USED FOR UNKNOWN INDICATION
     Route: 065

REACTIONS (2)
  - Drug ineffective [Unknown]
  - Product quality issue [Unknown]
